FAERS Safety Report 8736910 (Version 2)
Quarter: 2012Q4

REPORT INFORMATION
  Report Type: 
  Country: US (occurrence: US)
  Receive Date: 20120822
  Receipt Date: 20121115
  Transmission Date: 20130627
  Serious: Yes (Hospitalization)
  Sender: FDA-Public Use
  Company Number: US-PERRIGO-12US007149

PATIENT
  Age: 57 Year
  Sex: Male
  Weight: 108.39 kg

DRUGS (2)
  1. ACETAMINOPHEN [Suspect]
     Indication: NASOPHARYNGITIS
     Dosage: One packet, single
     Route: 048
     Dates: start: 20120713, end: 20120713
  2. FLOMAX [Concomitant]
     Indication: PROSTATOMEGALY
     Dosage: Unknown, Unknown
     Route: 048

REACTIONS (15)
  - Renal failure acute [Recovered/Resolved]
  - Obstructive uropathy [Recovering/Resolving]
  - Bladder outlet obstruction [Recovered/Resolved]
  - Urinary retention [Recovered/Resolved]
  - Urinary incontinence [Recovered/Resolved]
  - Micturition urgency [Recovering/Resolving]
  - Abdominal pain [Recovered/Resolved]
  - Constipation [Recovered/Resolved]
  - Hypertension [Recovering/Resolving]
  - Pyrexia [Recovering/Resolving]
  - Abdominal distension [Recovered/Resolved]
  - Blood creatinine increased [Recovered/Resolved]
  - Blood urea increased [Recovered/Resolved]
  - Urinary tract infection [None]
  - Sinusitis [None]
